FAERS Safety Report 7794566-1 (Version None)
Quarter: 2011Q3

REPORT INFORMATION
  Report Type: 
  Country: None (occurrence: None)
  Receive Date: 20110930
  Receipt Date: 20110922
  Transmission Date: 20111222
  Serious: Yes (Other)
  Sender: FDA-Public Use
  Company Number: 2011SP045081

PATIENT
  Age: 44 Year
  Sex: Female
  Weight: 64 kg

DRUGS (1)
  1. CERAZETTE (DESOGESTREL /00754001/) [Suspect]
     Indication: AMENORRHOEA
     Dosage: ;PO
     Route: 048
     Dates: start: 20060101

REACTIONS (5)
  - HYPERTENSION [None]
  - OFF LABEL USE [None]
  - DYSMENORRHOEA [None]
  - PAIN IN EXTREMITY [None]
  - MENORRHAGIA [None]
